FAERS Safety Report 10233714 (Version 1)
Quarter: 2014Q2

REPORT INFORMATION
  Report Type: Report from Study
  Country: JP (occurrence: JP)
  Receive Date: 20140612
  Receipt Date: 20140612
  Transmission Date: 20141212
  Serious: Yes (Other)
  Sender: FDA-Public Use
  Company Number: JP-TAKEDA-2014TJP006929

PATIENT
  Age: 80 Year
  Sex: Male

DRUGS (10)
  1. ALOGLIPTIN [Suspect]
     Indication: TYPE 2 DIABETES MELLITUS
     Dosage: 25 MG, QD
     Route: 048
     Dates: start: 20120312, end: 201402
  2. BAYMYCARD [Concomitant]
     Route: 048
  3. PRERAN [Concomitant]
     Route: 048
  4. TRICOR                             /00499301/ [Concomitant]
     Route: 048
  5. JUVELA N [Concomitant]
     Route: 048
  6. GASTER                             /00706001/ [Concomitant]
     Route: 065
  7. ITOROL [Concomitant]
     Route: 048
  8. ZETIA [Concomitant]
     Route: 048
  9. ERYTHROCIN                         /00020904/ [Concomitant]
     Route: 065
  10. MUCODYNE [Concomitant]
     Route: 065

REACTIONS (2)
  - Pancreatic carcinoma [Not Recovered/Not Resolved]
  - Constipation [Unknown]
